FAERS Safety Report 20433729 (Version 1)
Quarter: 2022Q1

REPORT INFORMATION
  Report Type: Spontaneous
  Country: US (occurrence: US)
  Receive Date: 20220205
  Receipt Date: 20220205
  Transmission Date: 20220423
  Serious: No
  Sender: FDA-Public Use
  Company Number: US-SA-SAC20220131001249

PATIENT
  Age: 49 Year
  Sex: Female

DRUGS (1)
  1. DUPIXENT [Suspect]
     Active Substance: DUPILUMAB
     Indication: Asthma
     Dosage: 300 MG/ML, FREQUENCY: OTHER
     Route: 058

REACTIONS (3)
  - Heart rate increased [Unknown]
  - Dysgeusia [Unknown]
  - Product use issue [Unknown]

NARRATIVE: CASE EVENT DATE: 20220126
